FAERS Safety Report 11158947 (Version 1)
Quarter: 2015Q2

REPORT INFORMATION
  Report Type: Spontaneous
  Country: US (occurrence: US)
  Receive Date: 20150603
  Receipt Date: 20150603
  Transmission Date: 20150821
  Serious: No
  Sender: FDA-Public Use
  Company Number: US-EISAI MEDICAL RESEARCH-EC-2015-007111

PATIENT
  Age: 34 Year
  Sex: Female

DRUGS (1)
  1. ERIBULIN [Suspect]
     Active Substance: ERIBULIN
     Indication: NEUROENDOCRINE BREAST TUMOUR
     Dosage: UNKNOWN
     Route: 041

REACTIONS (1)
  - Malignant neoplasm progression [Unknown]
